FAERS Safety Report 11289128 (Version 3)
Quarter: 2015Q4

REPORT INFORMATION
  Report Type: Spontaneous
  Country: ES (occurrence: ES)
  Receive Date: 20150721
  Receipt Date: 20151013
  Transmission Date: 20160304
  Serious: Yes (Other)
  Sender: FDA-Public Use
  Company Number: ES-GILEAD-2015-0153554

PATIENT
  Age: 53 Year
  Sex: Male

DRUGS (1)
  1. HARVONI [Suspect]
     Active Substance: LEDIPASVIR\SOFOSBUVIR
     Indication: HEPATITIS C
     Dosage: UNK
     Route: 065
     Dates: start: 2015

REACTIONS (7)
  - Overdose [Unknown]
  - Dysgeusia [Unknown]
  - Oral hyperaesthesia [Unknown]
  - Toothache [Unknown]
  - Incorrect dosage administered [Unknown]
  - Nausea [Unknown]
  - Ascites [Unknown]

NARRATIVE: CASE EVENT DATE: 20150513
